FAERS Safety Report 8257428-1 (Version None)
Quarter: 2012Q1

REPORT INFORMATION
  Report Type: 
  Country: None (occurrence: None)
  Receive Date: 20120330
  Receipt Date: 20120330
  Transmission Date: 20120608
  Serious: Yes (Life-Threatening, Hospitalization, Disabling)
  Sender: FDA-Public Use
  Company Number: None

PATIENT
  Age: 4 Year
  Sex: Female
  Weight: 21.3191 kg

DRUGS (1)
  1. CETIRIZINE HCL [Suspect]
     Indication: RASH
     Dosage: 1/2 TO 1 TEASPOON EVERY EVENING 1/23 UNTIL SEIZURES

REACTIONS (2)
  - CONVULSION [None]
  - HEMIPLEGIA [None]
